FAERS Safety Report 14241313 (Version 1)
Quarter: 2017Q4

REPORT INFORMATION
  Report Type: Spontaneous
  Country: US (occurrence: US)
  Receive Date: 20171130
  Receipt Date: 20171130
  Transmission Date: 20180321
  Serious: No
  Sender: FDA-Public Use
  Company Number: US-ASTRAZENECA-2017SF21430

PATIENT
  Sex: Female

DRUGS (1)
  1. NEXIUM 24HR [Suspect]
     Active Substance: ESOMEPRAZOLE MAGNESIUM
     Dosage: UNK UNK, 1X/DAY (TOOK THE PRODUCT AT 10 O^CLOCK AT NIGHT/CONSUMES THE PRODUCT AT 6PM)
     Route: 048

REACTIONS (2)
  - Intentional product misuse [Unknown]
  - Dyspepsia [Unknown]
